FAERS Safety Report 8823995 (Version 2)
Quarter: 2013Q1

REPORT INFORMATION
  Report Type: Spontaneous
  Country: US (occurrence: US)
  Receive Date: 20121003
  Receipt Date: 20130129
  Transmission Date: 20140127
  Serious: No
  Sender: FDA-Public Use
  Company Number: US-009507513-1210USA001333

PATIENT
  Age: 82 Year
  Sex: Male

DRUGS (2)
  1. MIRALAX [Suspect]
     Indication: LARGE INTESTINAL OBSTRUCTION
     Dosage: 17 G, BID
     Route: 048
  2. MIRALAX [Suspect]
     Indication: MEDICAL OBSERVATION

REACTIONS (3)
  - Diarrhoea [Recovered/Resolved]
  - Overdose [Recovered/Resolved]
  - Off label use [Unknown]
